FAERS Safety Report 19111211 (Version 2)
Quarter: 2021Q3

REPORT INFORMATION
  Report Type: Report from Study
  Country: GB (occurrence: GB)
  Receive Date: 20210408
  Receipt Date: 20210714
  Transmission Date: 20211014
  Serious: Yes (Other)
  Sender: FDA-Public Use
  Company Number: GB-SAMSUNG BIOEPIS-SB-2020-37539

PATIENT
  Sex: Female

DRUGS (1)
  1. IMRALDI [Suspect]
     Active Substance: ADALIMUMAB
     Indication: PSORIATIC ARTHROPATHY
     Route: 058
     Dates: start: 20201109

REACTIONS (10)
  - Sleep disorder [Unknown]
  - Psoriasis [Unknown]
  - Decreased appetite [Unknown]
  - Drug ineffective [Unknown]
  - Infection [Unknown]
  - Gait disturbance [Unknown]
  - Diabetes mellitus [Unknown]
  - Stress [Unknown]
  - COVID-19 [Unknown]
  - Mobility decreased [Unknown]
